FAERS Safety Report 9837593 (Version 1)
Quarter: 2013Q4

REPORT INFORMATION
  Report Type: Spontaneous
  Country: US (occurrence: None)
  Receive Date: 20131127
  Receipt Date: 20131127
  Transmission Date: 20140711
  Serious: No
  Sender: FDA-Public Use
  Company Number: 223803

PATIENT
  Sex: Male

DRUGS (2)
  1. PICATO [Suspect]
     Indication: ACTINIC KERATOSIS
     Dosage: 1 IN 1 D TOPICAL
     Dates: start: 20130830
  2. CRYOTHERAPY (NITROGEN, LIQUID) [Concomitant]

REACTIONS (4)
  - Application site erythema [None]
  - Application site exfoliation [None]
  - Drug administration error [None]
  - Incorrect drug administration duration [None]
